FAERS Safety Report 15487357 (Version 2)
Quarter: 2021Q4

REPORT INFORMATION
  Report Type: Spontaneous
  Country: US (occurrence: US)
  Receive Date: 20181011
  Receipt Date: 20211129
  Transmission Date: 20220303
  Serious: Yes (Disabling)
  Sender: FDA-Public Use
  Company Number: US-TEVA-2018-US-961896

PATIENT
  Age: 64 Year
  Sex: Female
  Weight: 65.77 kg

DRUGS (9)
  1. DOCETAXEL [Suspect]
     Active Substance: DOCETAXEL
     Indication: Invasive ductal breast carcinoma
     Dosage: 172 MG, 6 CYCLES, EVERY 3 WEEKS
     Route: 065
     Dates: start: 20151011, end: 20160308
  2. DOCETAXEL [Suspect]
     Active Substance: DOCETAXEL
     Indication: Sarcoma uterus
  3. DOCETAXEL [Suspect]
     Active Substance: DOCETAXEL
     Indication: Invasive ductal breast carcinoma
     Dosage: 172 MG, 6 CYCLES, EVERY 3 WEEKS
     Route: 065
     Dates: start: 20151011, end: 20160308
  4. DOCETAXEL [Suspect]
     Active Substance: DOCETAXEL
     Indication: Sarcoma uterus
  5. GEMZAR [Suspect]
     Active Substance: GEMCITABINE HYDROCHLORIDE
     Indication: Invasive ductal breast carcinoma
     Dosage: 172 MG, 6 CYCLES, EVERY 3 WEEKS
     Route: 065
     Dates: start: 20151011, end: 20160308
  6. GEMZAR [Suspect]
     Active Substance: GEMCITABINE HYDROCHLORIDE
     Indication: Sarcoma uterus
  7. OMEGA 3 [Concomitant]
     Active Substance: CAPSAICIN
     Route: 065
     Dates: start: 2008
  8. CALCIUM [Concomitant]
     Active Substance: CALCIUM
     Route: 065
     Dates: start: 2008
  9. EZETIMIBE [Concomitant]
     Active Substance: EZETIMIBE
     Route: 065
     Dates: start: 2008

REACTIONS (5)
  - Alopecia areata [Not Recovered/Not Resolved]
  - Madarosis [Not Recovered/Not Resolved]
  - Hair texture abnormal [Not Recovered/Not Resolved]
  - Hair colour changes [Not Recovered/Not Resolved]
  - Chloasma [Unknown]

NARRATIVE: CASE EVENT DATE: 20151201
